FAERS Safety Report 5047896-0 (Version None)
Quarter: 2006Q3

REPORT INFORMATION
  Report Type: 
  Country: None (occurrence: None)
  Receive Date: 20060711
  Receipt Date: 20060622
  Transmission Date: 20061208
  Serious: Yes (Other)
  Sender: FDA-Public Use
  Company Number: US-GLAXOSMITHKLINE-A0610011A

PATIENT
  Age: 55 Year
  Sex: Female
  Weight: 59.1 kg

DRUGS (2)
  1. MEPRON [Suspect]
     Indication: BABESIOSIS
     Dosage: 750MG TWICE PER DAY
     Route: 048
     Dates: start: 20060608, end: 20060615
  2. AZITHROMYCIN [Concomitant]
     Indication: BABESIOSIS
     Route: 048
     Dates: start: 20060608, end: 20060615

REACTIONS (3)
  - ANGIONEUROTIC OEDEMA [None]
  - RASH [None]
  - RASH PAPULAR [None]
